FAERS Safety Report 21586614 (Version 3)
Quarter: 2022Q4

REPORT INFORMATION
  Report Type: Spontaneous
  Country: BR (occurrence: BR)
  Receive Date: 20221113
  Receipt Date: 20221223
  Transmission Date: 20230113
  Serious: Yes (Other)
  Sender: FDA-Public Use
  Company Number: BR-BoehringerIngelheim-2022-BI-201324

PATIENT
  Age: 60 Year
  Sex: Female

DRUGS (1)
  1. NINTEDANIB [Suspect]
     Active Substance: NINTEDANIB
     Indication: Interstitial lung disease

REACTIONS (6)
  - Transplant rejection [Unknown]
  - Organising pneumonia [Unknown]
  - Forced vital capacity decreased [Unknown]
  - Dyspnoea [Unknown]
  - General physical health deterioration [Unknown]
  - Hypoxia [Unknown]
